FAERS Safety Report 26158671 (Version 1)
Quarter: 2025Q4

REPORT INFORMATION
  Report Type: Spontaneous
  Country: US (occurrence: US)
  Receive Date: 20251215
  Receipt Date: 20251215
  Transmission Date: 20260118
  Serious: No
  Sender: MERCK SHARP & DOHME LLC
  Company Number: US-009507513-2358872

PATIENT
  Sex: Female
  Weight: 93.4 kg

DRUGS (29)
  1. WINREVAIR [Suspect]
     Active Substance: SOTATERCEPT-CSRK
     Indication: Product used for unknown indication
     Dosage: SECOND INJECTION
     Dates: start: 20251210
  2. WINREVAIR [Suspect]
     Active Substance: SOTATERCEPT-CSRK
  3. WINREVAIR [Suspect]
     Active Substance: SOTATERCEPT-CSRK
  4. WINREVAIR [Suspect]
     Active Substance: SOTATERCEPT-CSRK
  5. ORENITRAM [Concomitant]
     Active Substance: TREPROSTINIL
     Indication: Pulmonary arterial hypertension
     Dosage: TIME INTERVAL: 0.33333333 DAYS: SUPPLIED 2.5 MG AND 5 MG, CURRENT DOSE WAS REPORTED AS 7.5 MG
     Route: 048
     Dates: start: 20220610
  6. ORENITRAM [Concomitant]
     Active Substance: TREPROSTINIL
     Indication: Pulmonary arterial hypertension
     Dosage: TIME INTERVAL: 0.33333333 DAYS: SUPPLIED 2.5 MG AND 5 MG, CURRENT DOSE WAS REPORTED AS 7.5 MG
     Route: 048
  7. ORENITRAM [Concomitant]
     Active Substance: TREPROSTINIL
     Indication: Pulmonary arterial hypertension
     Dosage: TIME INTERVAL: 0.33333333 DAYS: SUPPLIED 2.5 MG AND 5 MG, CURRENT DOSE WAS REPORTED AS 7.5 MG
     Route: 048
  8. PREDNISONE [Concomitant]
     Active Substance: PREDNISONE
  9. FOLIC ACID [Concomitant]
     Active Substance: FOLIC ACID
  10. Miralax (macrogol 3350) [Concomitant]
  11. BUMETANIDE [Concomitant]
     Active Substance: BUMETANIDE
  12. Biktarvy (bictegravir sodium, emtricitabine, tenofovir alafenamide ... [Concomitant]
  13. SILDENAFIL CITRATE [Concomitant]
     Active Substance: SILDENAFIL CITRATE
  14. Klor-con M20 (potassium chloride) [Concomitant]
  15. Apple cider vinegar (Malus spp. vinegar extract) [Concomitant]
  16. TRAMADOL HYDROCHLORIDE [Concomitant]
     Active Substance: TRAMADOL HYDROCHLORIDE
  17. AMITRIPTYLINE HYDROCHLORIDE [Concomitant]
     Active Substance: AMITRIPTYLINE HYDROCHLORIDE
  18. OPSUMIT [Concomitant]
     Active Substance: MACITENTAN
  19. CRANBERRY [Concomitant]
     Active Substance: CRANBERRY
  20. SPIRONOLACTONE [Concomitant]
     Active Substance: SPIRONOLACTONE
  21. CYCLOBENZAPRINE HYDROCHLORIDE [Concomitant]
     Active Substance: CYCLOBENZAPRINE HYDROCHLORIDE
  22. Simponi aria (golimumab) [Concomitant]
  23. MECLIZINE HYDROCHLORIDE [Concomitant]
     Active Substance: MECLIZINE HYDROCHLORIDE
  24. OMEPRAZOLE [Concomitant]
     Active Substance: OMEPRAZOLE
  25. Zyrtec (cetirizine HCl) [Concomitant]
  26. ROSUVASTATIN CALCIUM [Concomitant]
     Active Substance: ROSUVASTATIN CALCIUM
  27. ASPIRIN [Concomitant]
     Active Substance: ASPIRIN
  28. Valtrex (valaciclovir HCl) [Concomitant]
  29. ONDANSETRON HYDROCHLORIDE [Concomitant]
     Active Substance: ONDANSETRON HYDROCHLORIDE

REACTIONS (1)
  - Laboratory test abnormal [Unknown]

NARRATIVE: CASE EVENT DATE: 20250101
